FAERS Safety Report 8668884 (Version 3)
Quarter: 2012Q4

REPORT INFORMATION
  Report Type: Report from Study
  Country: JP (occurrence: JP)
  Receive Date: 20120717
  Receipt Date: 20121207
  Transmission Date: 20130627
  Serious: Yes (Life-Threatening, Hospitalization, Other)
  Sender: FDA-Public Use
  Company Number: PHHY2012JP060399

PATIENT
  Age: 70 Year
  Sex: Female
  Weight: 44 kg

DRUGS (18)
  1. AFINITOR [Suspect]
     Indication: METASTATIC RENAL CELL CARCINOMA
     Dosage: 5 mg, daily
     Route: 048
     Dates: start: 20100722, end: 20101101
  2. CARDENALIN [Concomitant]
     Dosage: 6 mg, UNK
     Dates: start: 20100722
  3. GRAMALIL [Concomitant]
     Dosage: 50 mg, UNK
     Dates: start: 20100722
  4. SG [Concomitant]
  5. LIPOVAS [Concomitant]
     Dosage: 5 mg, UNK
     Dates: start: 20100823
  6. TERNELIN [Concomitant]
  7. ADALAT [Concomitant]
  8. LASIX [Concomitant]
     Dosage: UNK
     Dates: start: 20100722
  9. RENIVACE [Concomitant]
     Dosage: 5 mg, UNK
     Dates: start: 20100722
  10. THYRADIN [Concomitant]
     Dosage: 50 mg, UNK
     Dates: start: 20100722
  11. JUVELA [Concomitant]
     Dosage: 600 mg, UNK
     Dates: start: 20100722
  12. MUCOSTA [Concomitant]
     Dosage: 300 mg, UNK
     Dates: start: 20100722
  13. LOXONIN [Concomitant]
     Dosage: 180 mg, UNK
     Route: 048
  14. MICARDIS [Concomitant]
     Dosage: 80 mg, UNK
     Route: 048
     Dates: start: 20100722
  15. BEZATOL - SLOW RELEASE [Concomitant]
     Dosage: 400 mg, UNK
     Route: 048
  16. AZULENE [Concomitant]
     Dosage: 6 g, UNK
  17. LAXOBERON [Concomitant]
     Dates: start: 20100722
  18. XYLOCAINE [Concomitant]

REACTIONS (10)
  - Interstitial lung disease [Recovering/Resolving]
  - Lymphadenopathy [Recovering/Resolving]
  - Pleural effusion [Recovering/Resolving]
  - Dyspnoea [Recovering/Resolving]
  - Malaise [Recovering/Resolving]
  - Chest discomfort [Recovering/Resolving]
  - Loss of consciousness [Recovering/Resolving]
  - Neoplasm progression [Not Recovered/Not Resolved]
  - Malignant neoplasm progression [Not Recovered/Not Resolved]
  - Sinus tachycardia [Unknown]
